FAERS Safety Report 5373333-2 (Version None)
Quarter: 2007Q2

REPORT INFORMATION
  Report Type: 
  Country: None (occurrence: None)
  Receive Date: 20070626
  Receipt Date: 20070626
  Transmission Date: 20071010
  Serious: No
  Sender: FDA-Public Use
  Company Number: None

PATIENT
  Age: 43 Year
  Sex: Female
  Weight: 79.3795 kg

DRUGS (2)
  1. GENTAMICIN [Suspect]
     Indication: PSEUDOMONAS INFECTION
     Dosage: READYMED HOME PUMP  EVERY 8 HOURS  IV
     Route: 042
     Dates: start: 20070412, end: 20070428
  2. GENTAMICIN [Suspect]
     Indication: SINUSITIS
     Dosage: READYMED HOME PUMP  EVERY 8 HOURS  IV
     Route: 042
     Dates: start: 20070412, end: 20070428

REACTIONS (2)
  - OTOTOXICITY [None]
  - VESTIBULAR DISORDER [None]
